FAERS Safety Report 6362070-3 (Version None)
Quarter: 2009Q3

REPORT INFORMATION
  Report Type: 
  Country: None (occurrence: None)
  Receive Date: 20090918
  Receipt Date: 20090909
  Transmission Date: 20100115
  Serious: Yes (Hospitalization)
  Sender: FDA-Public Use
  Company Number: PHHY2009AU38413

PATIENT
  Sex: Female

DRUGS (1)
  1. CLOZARIL [Suspect]
     Dosage: 100 MG, UNK
     Dates: start: 19990418

REACTIONS (2)
  - DRUG DOSE OMISSION [None]
  - PSYCHIATRIC SYMPTOM [None]
